FAERS Safety Report 5354727-8 (Version None)
Quarter: 2007Q2

REPORT INFORMATION
  Report Type: 
  Country: None (occurrence: None)
  Receive Date: 20070611
  Receipt Date: 20070604
  Transmission Date: 20071010
  Serious: Yes (Hospitalization)
  Sender: FDA-Public Use
  Company Number: E2020-01235-SPO-SE

PATIENT
  Age: 57 Year
  Sex: Female
  Weight: 51 kg

DRUGS (9)
  1. ARICEPT [Suspect]
     Indication: DEMENTIA ALZHEIMER'S TYPE
     Dosage: SEE IMAGE
     Route: 048
     Dates: start: 20070512, end: 20070501
  2. ARICEPT [Suspect]
     Indication: DEMENTIA ALZHEIMER'S TYPE
     Dosage: SEE IMAGE
     Route: 048
     Dates: start: 20070115, end: 20070511
  3. METOPROLOL TARTRATE [Suspect]
     Dosage: 50 MG, ORAL
     Route: 048
  4. HUMALOG [Concomitant]
  5. FUROSEMIDE [Concomitant]
  6. ARANESP [Concomitant]
  7. LOPERAMIDE HCL [Concomitant]
  8. NOVOMIX FLEXPEN (INSULIN ASPART) [Concomitant]
  9. RAMIPRIL [Concomitant]

REACTIONS (5)
  - DRUG INTERACTION [None]
  - HYPOGLYCAEMIA [None]
  - HYPOTHERMIA [None]
  - LOSS OF CONSCIOUSNESS [None]
  - TREMOR [None]
